FAERS Safety Report 14533631 (Version 3)
Quarter: 2018Q1

REPORT INFORMATION
  Report Type: Spontaneous
  Country: US (occurrence: US)
  Receive Date: 20180215
  Receipt Date: 20180216
  Transmission Date: 20180509
  Serious: No
  Sender: FDA-Public Use
  Company Number: US-009507513-1802USA004362

PATIENT
  Sex: Female
  Weight: 83.9 kg

DRUGS (1)
  1. SINGULAIR [Suspect]
     Active Substance: MONTELUKAST SODIUM
     Dosage: 1 TABLET (10 MG) ONCE A DAY
     Route: 048

REACTIONS (3)
  - Product contamination physical [Unknown]
  - No adverse event [Unknown]
  - Drug administration error [Unknown]
